FAERS Safety Report 5304774-7 (Version None)
Quarter: 2007Q2

REPORT INFORMATION
  Report Type: 
  Country: None (occurrence: None)
  Receive Date: 20070423
  Receipt Date: 20070411
  Transmission Date: 20071010
  Serious: Yes (Other)
  Sender: FDA-Public Use
  Company Number: DE-GENENTECH-239777

PATIENT
  Age: 63 Year
  Sex: Male

DRUGS (4)
  1. MABTHERA [Suspect]
     Indication: CHRONIC LYMPHOCYTIC LEUKAEMIA
     Dosage: UNK, Q4W
  2. FLUDARABINE [Concomitant]
     Indication: CHRONIC LYMPHOCYTIC LEUKAEMIA
     Dosage: UNK, Q4W
  3. CYCLOPHOSPHAMIDE [Concomitant]
     Indication: CHRONIC LYMPHOCYTIC LEUKAEMIA
     Dosage: UNK, Q4W
  4. PREDNISOLONE [Concomitant]
     Indication: CHRONIC LYMPHOCYTIC LEUKAEMIA
     Dosage: UNK, Q4W

REACTIONS (11)
  - ARTHRALGIA [None]
  - BORRELIA BURGDORFERI SEROLOGY NEGATIVE [None]
  - BORRELIA INFECTION [None]
  - DISEASE PROGRESSION [None]
  - FACIAL PARESIS [None]
  - GAMMA-GLUTAMYLTRANSFERASE INCREASED [None]
  - HAEMOGLOBIN DECREASED [None]
  - HYPERAESTHESIA [None]
  - LYMPHOMA [None]
  - PARAESTHESIA [None]
  - RED BLOOD CELL COUNT DECREASED [None]
